FAERS Safety Report 9390749 (Version 1)
Quarter: 2013Q3

REPORT INFORMATION
  Report Type: Report from Study
  Country: CA (occurrence: CA)
  Receive Date: 20130709
  Receipt Date: 20130709
  Transmission Date: 20140515
  Serious: Yes (Other)
  Sender: FDA-Public Use
  Company Number: CA-JNJFOC-20130517738

PATIENT
  Age: 72 Year
  Sex: Female
  Weight: 67.13 kg

DRUGS (16)
  1. REMICADE [Suspect]
     Indication: RHEUMATOID ARTHRITIS
     Route: 042
  2. REMICADE [Suspect]
     Indication: RHEUMATOID ARTHRITIS
     Route: 042
     Dates: start: 20100310
  3. REMICADE [Suspect]
     Indication: RHEUMATOID ARTHRITIS
     Route: 042
     Dates: start: 20130516
  4. REMICADE [Suspect]
     Indication: CROHN^S DISEASE
     Route: 042
  5. REMICADE [Suspect]
     Indication: CROHN^S DISEASE
     Route: 042
     Dates: start: 20130516
  6. REMICADE [Suspect]
     Indication: CROHN^S DISEASE
     Route: 042
     Dates: start: 20100310
  7. APO-ATENIDONE [Concomitant]
     Dosage: 50/25 (DOSE UNSPECIFIED)
     Route: 065
  8. LIPITOR [Concomitant]
     Route: 065
  9. K-DUR [Concomitant]
     Dosage: 5 TABLETS
     Route: 065
  10. PANTOPRAZOLE [Concomitant]
     Route: 065
  11. CANDESARTAN CILEXETIL [Concomitant]
     Route: 065
  12. METFORMIN [Concomitant]
     Route: 065
  13. ATORVASTATIN [Concomitant]
     Route: 065
  14. JAMP-K20 [Concomitant]
     Dosage: 20MEG
     Route: 065
  15. TECTA [Concomitant]
     Route: 065
  16. ACETAMINOPHEN WITH CODEINE [Concomitant]
     Dosage: AS NEEDED
     Route: 065

REACTIONS (2)
  - Gastrointestinal ulcer [Recovering/Resolving]
  - Weight decreased [Not Recovered/Not Resolved]
